FAERS Safety Report 16935682 (Version 7)
Quarter: 2022Q2

REPORT INFORMATION
  Report Type: Spontaneous
  Country: IN (occurrence: IN)
  Receive Date: 20191018
  Receipt Date: 20220627
  Transmission Date: 20220721
  Serious: Yes (Death, Other)
  Sender: FDA-Public Use
  Company Number: IN-PFIZER INC-2019155950

PATIENT
  Age: 46 Year
  Sex: Female

DRUGS (7)
  1. PALBOCICLIB [Suspect]
     Active Substance: PALBOCICLIB
     Indication: Breast cancer metastatic
     Dosage: 125 MG, CYCLIC (ONCE A DAY FOR 21 DAYS/30 DAYS, 9 DAYS GAP)
     Route: 048
     Dates: start: 20171207
  2. PALBOCICLIB [Suspect]
     Active Substance: PALBOCICLIB
     Dosage: 125 MG, CYCLIC: (ONCE A DAY , CYCLIC (ONCE A DAY, 7 DAYS ON AND 7 DAYS GAP)
     Route: 048
     Dates: end: 20210524
  3. FEMARA [Concomitant]
     Active Substance: LETROZOLE
     Dosage: 1 DF, DAILY
     Dates: start: 20171219
  4. CALMING [Concomitant]
     Dosage: 1 DF, DAILY FOR 4 MONTHS
     Dates: start: 20171219
  5. ZOLDONAT [Concomitant]
     Dosage: UNK
     Dates: start: 2017
  6. UPRISE D3 [Concomitant]
     Dosage: 60 K ONCE A WEEK
  7. FULVESTRANT [Concomitant]
     Active Substance: FULVESTRANT
     Dosage: 500 MG, MONTHLY

REACTIONS (7)
  - Death [Fatal]
  - Neuropathy peripheral [Unknown]
  - Blood creatinine abnormal [Unknown]
  - Skin hypertrophy [Unknown]
  - Alopecia [Unknown]
  - Neoplasm progression [Unknown]
  - Intentional product misuse [Unknown]

NARRATIVE: CASE EVENT DATE: 20190329
